FAERS Safety Report 21051979 (Version 2)
Quarter: 2022Q3

REPORT INFORMATION
  Report Type: Spontaneous
  Country: RU (occurrence: RU)
  Receive Date: 20220707
  Receipt Date: 20220721
  Transmission Date: 20221027
  Serious: Yes (Hospitalization, Other)
  Sender: FDA-Public Use
  Company Number: RU-NOVARTISPH-NVSC2022RU150172

PATIENT
  Age: 83 Year
  Sex: Female

DRUGS (13)
  1. SACUBITRIL\VALSARTAN [Suspect]
     Active Substance: SACUBITRIL\VALSARTAN
     Indication: Product used for unknown indication
     Dosage: 50 MG, BID (2 TIMES PER DAY)
     Route: 065
     Dates: start: 20220611, end: 20220613
  2. JARDIANCE [Concomitant]
     Active Substance: EMPAGLIFLOZIN
     Indication: Product used for unknown indication
     Dosage: 25
     Route: 065
     Dates: end: 20220613
  3. EPLERENONE [Concomitant]
     Active Substance: EPLERENONE
     Indication: Product used for unknown indication
     Dosage: 25 MG, QD (IN THE MORNING)
     Route: 065
     Dates: end: 20220613
  4. LERCANIDIPINE [Concomitant]
     Active Substance: LERCANIDIPINE
     Indication: Product used for unknown indication
     Dosage: UNK
     Route: 065
  5. DIGOXIN [Concomitant]
     Active Substance: DIGOXIN
     Indication: Product used for unknown indication
     Dosage: 0.0625
     Route: 065
  6. BISOPROLOL [Concomitant]
     Active Substance: BISOPROLOL
     Indication: Product used for unknown indication
     Dosage: 5
     Route: 065
  7. TELMISARTAN [Concomitant]
     Active Substance: TELMISARTAN
     Indication: Product used for unknown indication
     Dosage: 80
     Route: 065
  8. INDAPAMIDE [Concomitant]
     Active Substance: INDAPAMIDE
     Indication: Product used for unknown indication
     Dosage: 2.5
     Route: 065
  9. TREXONATE [Concomitant]
     Indication: Product used for unknown indication
     Dosage: 10
     Route: 065
  10. ATORVASTATIN [Concomitant]
     Active Substance: ATORVASTATIN
     Indication: Product used for unknown indication
     Dosage: 20
     Route: 065
  11. TORSEMIDE [Concomitant]
     Active Substance: TORSEMIDE
     Indication: Product used for unknown indication
     Dosage: 80 MG
     Route: 042
     Dates: start: 20220613
  12. TORSEMIDE [Concomitant]
     Active Substance: TORSEMIDE
     Dosage: 10
     Route: 065
  13. FUROSEMIDE [Concomitant]
     Active Substance: FUROSEMIDE
     Indication: Product used for unknown indication
     Dosage: UNK
     Route: 065
     Dates: start: 20220613

REACTIONS (10)
  - Dyspnoea [Recovering/Resolving]
  - Anuria [Recovered/Resolved]
  - Anuria [Recovered/Resolved]
  - Blood creatinine increased [Recovering/Resolving]
  - Glomerular filtration rate decreased [Recovering/Resolving]
  - Pulmonary hypertension [Recovering/Resolving]
  - Cardiac failure chronic [Unknown]
  - Dyspnoea exertional [Recovering/Resolving]
  - White blood cell count increased [Unknown]
  - Leukocyturia [Unknown]

NARRATIVE: CASE EVENT DATE: 20220613
